FAERS Safety Report 19115811 (Version 1)
Quarter: 2021Q2

REPORT INFORMATION
  Report Type: Report from Study
  Country: US (occurrence: US)
  Receive Date: 20210409
  Receipt Date: 20210409
  Transmission Date: 20210717
  Serious: Yes (Death, Hospitalization, Other)
  Sender: FDA-Public Use
  Company Number: US-EMD SERONO-E2B_80024904

PATIENT
  Age: 57 Year
  Sex: Male

DRUGS (4)
  1. REBIF [Suspect]
     Active Substance: INTERFERON BETA-1A
     Dosage: PRE?FILLED SYRINGE
     Route: 058
     Dates: start: 20031105
  2. BOTOX [Concomitant]
     Active Substance: ONABOTULINUMTOXINA
     Indication: MUSCLE SPASTICITY
  3. REBIF [Suspect]
     Active Substance: INTERFERON BETA-1A
     Indication: MULTIPLE SCLEROSIS
     Dosage: PRE?FILLED SYRINGE
     Route: 058
     Dates: start: 20020903, end: 20030712
  4. METHENAMINE [Concomitant]
     Active Substance: METHENAMINE
     Indication: URINARY TRACT INFECTION

REACTIONS (11)
  - Lung disorder [Fatal]
  - Pyrexia [Unknown]
  - Liver disorder [Unknown]
  - Post procedural infection [Unknown]
  - COVID-19 [Fatal]
  - Infection [Unknown]
  - Multiple sclerosis [Unknown]
  - Cardiac disorder [Fatal]
  - Aortic valve replacement [Unknown]
  - Cellulitis [Unknown]
  - Cyst [Unknown]

NARRATIVE: CASE EVENT DATE: 200304
